FAERS Safety Report 7284024-5 (Version None)
Quarter: 2011Q1

REPORT INFORMATION
  Report Type: 
  Country: None (occurrence: None)
  Receive Date: 20110209
  Receipt Date: 20110204
  Transmission Date: 20110831
  Serious: Yes (Hospitalization)
  Sender: FDA-Public Use
  Company Number: US-AMGEN-USASP2011007321

PATIENT
  Age: 78 Year
  Sex: Female

DRUGS (15)
  1. ASPIRIN [Concomitant]
  2. LEVAQUIN [Concomitant]
  3. CORTICOSTEROIDS [Concomitant]
     Indication: IDIOPATHIC THROMBOCYTOPENIC PURPURA
  4. LASIX [Concomitant]
  5. LORATADINE [Concomitant]
  6. LACRI-LUBE [Concomitant]
  7. PROTONIX [Concomitant]
  8. FLAGYL [Concomitant]
  9. COUMADIN [Concomitant]
  10. CELEXA [Concomitant]
  11. INSULIN [Concomitant]
  12. CARDIZEM [Concomitant]
  13. FLORASTOR [Concomitant]
  14. NPLATE [Suspect]
     Indication: IDIOPATHIC THROMBOCYTOPENIC PURPURA
     Dosage: 1 A?G/KG, UNK
     Dates: start: 20100616
  15. OXYBUTYNIN [Concomitant]

REACTIONS (3)
  - CEREBROVASCULAR ACCIDENT [None]
  - ASTHENIA [None]
  - LETHARGY [None]
